FAERS Safety Report 9013699 (Version 1)
Quarter: 2013Q1

REPORT INFORMATION
  Report Type: Spontaneous
  Country: US (occurrence: US)
  Receive Date: 20130115
  Receipt Date: 20130115
  Transmission Date: 20140127
  Serious: Yes (Life-Threatening, Other)
  Sender: FDA-Public Use
  Company Number: PHEH2013US000752

PATIENT
  Sex: Female

DRUGS (1)
  1. VALSARTAN + HCT [Suspect]

REACTIONS (5)
  - Feeling abnormal [Unknown]
  - Blood pressure increased [Unknown]
  - Malaise [Unknown]
  - Lethargy [Unknown]
  - Heart rate increased [Unknown]
